FAERS Safety Report 7403947-7 (Version None)
Quarter: 2011Q2

REPORT INFORMATION
  Report Type: 
  Country: None (occurrence: None)
  Receive Date: 20110408
  Receipt Date: 20110404
  Transmission Date: 20111010
  Serious: Yes (Life-Threatening)
  Sender: FDA-Public Use
  Company Number: FR-ASTRAZENECA-2011SE17059

PATIENT
  Age: 26148 Day
  Sex: Female

DRUGS (10)
  1. MIDAZOLAM [Suspect]
     Indication: INDUCTION OF ANAESTHESIA
     Dosage: ONCE
     Route: 042
     Dates: start: 20091106, end: 20091106
  2. CEFAZOLIN [Suspect]
     Indication: INDUCTION OF ANAESTHESIA
     Route: 042
     Dates: start: 20091106, end: 20091106
  3. TRACRIUM [Suspect]
     Indication: INDUCTION OF ANAESTHESIA
     Dosage: ONCE
     Route: 042
     Dates: start: 20091106, end: 20091106
  4. SUFENTA PRESERVATIVE FREE [Suspect]
     Indication: INDUCTION OF ANAESTHESIA
     Dosage: ONCE
     Route: 042
     Dates: start: 20091106, end: 20091106
  5. KETAMINE HCL [Suspect]
     Indication: INDUCTION OF ANAESTHESIA
     Dosage: ONCE
     Route: 042
     Dates: start: 20091106, end: 20091106
  6. SERC [Concomitant]
  7. PRAXILENE [Concomitant]
  8. NOCERTONE [Concomitant]
  9. FRACTAL [Concomitant]
  10. DIPRIVAN [Suspect]
     Indication: INDUCTION OF ANAESTHESIA
     Dosage: ONCE
     Route: 042
     Dates: start: 20091106, end: 20091106

REACTIONS (1)
  - ANAPHYLACTIC SHOCK [None]
